FAERS Safety Report 4834465-8 (Version None)
Quarter: 2005Q4

REPORT INFORMATION
  Report Type: 
  Country: None (occurrence: None)
  Receive Date: 20051122
  Receipt Date: 20041207
  Transmission Date: 20060501
  Serious: No
  Sender: FDA-Public Use
  Company Number: US-BRISTOL-MYERS SQUIBB COMPANY-12788238

PATIENT
  Age: 87 Year
  Sex: Male
  Weight: 75 kg

DRUGS (7)
  1. PRAVACHOL [Suspect]
     Indication: HYPERLIPIDAEMIA
     Route: 048
  2. COUMADIN [Concomitant]
  3. ACIPHEX [Concomitant]
  4. POTASSIUM [Concomitant]
  5. LASIX [Concomitant]
  6. ARICEPT [Concomitant]
  7. MULTI-VITAMIN [Concomitant]

REACTIONS (1)
  - PAIN [None]
